FAERS Safety Report 7042938-5 (Version None)
Quarter: 2010Q4

REPORT INFORMATION
  Report Type: 
  Country: None (occurrence: None)
  Receive Date: 20101013
  Receipt Date: 20100427
  Transmission Date: 20110411
  Serious: No
  Sender: FDA-Public Use
  Company Number: US-ASTRAZENECA-2010SE18909

PATIENT
  Age: 71 Year
  Sex: Male

DRUGS (5)
  1. SYMBICORT [Suspect]
     Indication: BRONCHITIS
     Dosage: 640 MG
     Route: 055
     Dates: start: 20100417
  2. SYMBICORT [Suspect]
     Indication: ASTHMA
     Dosage: 640 MG
     Route: 055
     Dates: start: 20100417
  3. AMBIEN [Concomitant]
  4. OMEPRAZOLE [Concomitant]
  5. ANALAPRIL [Concomitant]

REACTIONS (3)
  - BRONCHITIS [None]
  - DRUG INEFFECTIVE [None]
  - SOMNOLENCE [None]
